FAERS Safety Report 4369103-4 (Version None)
Quarter: 2004Q2

REPORT INFORMATION
  Report Type: 
  Country: None (occurrence: None)
  Receive Date: 20040528
  Receipt Date: 20040518
  Transmission Date: 20050107
  Serious: Yes (Other)
  Sender: FDA-Public Use
  Company Number: 2004213816CA

PATIENT
  Age: 21 Year
  Sex: Female
  Weight: 54.4 kg

DRUGS (2)
  1. DEPO-PROVERA [Suspect]
     Indication: CONTRACEPTION
     Dosage: 150 MG/3MONTHS, 1ST INJ., INTRAMUSCULAR
     Route: 030
     Dates: start: 20030626, end: 20030626
  2. DEPO-PROVERA [Suspect]
     Indication: CONTRACEPTION
     Dosage: 150 MG/3MONTHS, 1ST INJ., INTRAMUSCULAR
     Route: 030
     Dates: start: 20040228, end: 20040228

REACTIONS (1)
  - MIGRAINE [None]
